FAERS Safety Report 9421328 (Version 4)
Quarter: 2014Q1

REPORT INFORMATION
  Report Type: Spontaneous
  Country: US (occurrence: US)
  Receive Date: 20130725
  Receipt Date: 20140103
  Transmission Date: 20141002
  Serious: Yes (Hospitalization)
  Sender: FDA-Public Use
  Company Number: US-BAXTER-2013BAX028944

PATIENT
  Age: 73 Year
  Sex: Female

DRUGS (4)
  1. DIANEAL LOW CALCIUM [Suspect]
     Indication: PERITONEAL DIALYSIS
     Dosage: 2 X 6L
     Route: 033
     Dates: start: 20130608, end: 201307
  2. DIANEAL LOW CALCIUM [Suspect]
     Route: 033
     Dates: start: 201309
  3. DIANEAL LOW CALCIUM [Suspect]
     Indication: PERITONEAL DIALYSIS
     Route: 033
     Dates: start: 20130608, end: 20130608
  4. DIANEAL LOW CALCIUM [Suspect]
     Route: 033
     Dates: start: 201309

REACTIONS (2)
  - Cholelithiasis [Recovered/Resolved]
  - Dehydration [Recovered/Resolved]
